FAERS Safety Report 17715013 (Version 1)
Quarter: 2020Q2

REPORT INFORMATION
  Report Type: Spontaneous
  Country: FR (occurrence: FR)
  Receive Date: 20200427
  Receipt Date: 20200427
  Transmission Date: 20200714
  Serious: Yes (Life-Threatening)
  Sender: FDA-Public Use
  Company Number: FR-MYLANLABS-2020M1041772

PATIENT
  Age: 53 Year
  Sex: Male
  Weight: 70 kg

DRUGS (2)
  1. KETOPROFEN. [Suspect]
     Active Substance: KETOPROFEN
     Indication: PERIARTHRITIS
     Dosage: NON PR?CIS?
     Route: 048
  2. SOLUPRED                           /00016217/ [Suspect]
     Active Substance: PREDNISOLONE SODIUM METAZOATE
     Indication: PERIARTHRITIS
     Dosage: 60 MILLIGRAM, QD
     Route: 048
     Dates: start: 20200312

REACTIONS (3)
  - Lung disorder [Recovered/Resolved]
  - Coronavirus infection [Recovered/Resolved]
  - Condition aggravated [Recovered/Resolved]

NARRATIVE: CASE EVENT DATE: 20200313
